FAERS Safety Report 14754225 (Version 3)
Quarter: 2018Q2

REPORT INFORMATION
  Report Type: Spontaneous
  Country: PL (occurrence: PL)
  Receive Date: 20180412
  Receipt Date: 20180508
  Transmission Date: 20180711
  Serious: Yes (Hospitalization, Other)
  Sender: FDA-Public Use
  Company Number: PL-ABBVIE-18P-129-2210644-00

PATIENT
  Age: 14 Year
  Sex: Female

DRUGS (3)
  1. VALPROIC ACID. [Suspect]
     Active Substance: VALPROIC ACID
     Indication: EPILEPSY
     Route: 065
  2. TOPIRAMATE. [Suspect]
     Active Substance: TOPIRAMATE
     Indication: EPILEPSY
     Route: 065
  3. LEVETIRACETAM. [Suspect]
     Active Substance: LEVETIRACETAM
     Indication: EPILEPSY
     Route: 065

REACTIONS (11)
  - Encephalopathy [Recovered/Resolved]
  - Loss of consciousness [Unknown]
  - Acute hepatic failure [Recovered/Resolved]
  - Epilepsy [Unknown]
  - Partial seizures [Unknown]
  - Mitochondrial cytopathy [Unknown]
  - Pupils unequal [Unknown]
  - Brain oedema [Unknown]
  - Acidosis [Unknown]
  - Coagulopathy [Unknown]
  - Hypoglycaemia [Unknown]
